FAERS Safety Report 4481540-6 (Version None)
Quarter: 2004Q4

REPORT INFORMATION
  Report Type: 
  Country: None (occurrence: None)
  Receive Date: 20041021
  Receipt Date: 20041011
  Transmission Date: 20050328
  Serious: Yes (Hospitalization)
  Sender: FDA-Public Use
  Company Number: STA-AE-04-MTX-476

PATIENT
  Age: 71 Year
  Sex: Female

DRUGS (4)
  1. RHEUMATREX [Suspect]
     Indication: RHEUMATOID ARTHRITIS
     Dosage: 4 MG 1X PER 1 WK, ORAL
     Route: 048
     Dates: start: 20040419, end: 20040811
  2. UNSPECIFIED HOMEOPATHIC (UNSPECIFIED HOMEOPATHIC) [Concomitant]
  3. PERSANTIN [Concomitant]
  4. GASTER (FAMOTIDINE) [Concomitant]

REACTIONS (2)
  - PNEUMONIA [None]
  - PNEUMONIA FUNGAL [None]
